FAERS Safety Report 14009101 (Version 1)
Quarter: 2017Q3

REPORT INFORMATION
  Report Type: Spontaneous
  Country: PT (occurrence: PT)
  Receive Date: 20170925
  Receipt Date: 20170925
  Transmission Date: 20171128
  Serious: Yes (Death, Hospitalization, Other)
  Sender: FDA-Public Use
  Company Number: PT-IMPAX LABORATORIES, INC-2017-IPXL-02742

PATIENT
  Age: 56 Year
  Sex: Male

DRUGS (2)
  1. RILUZOLE. [Suspect]
     Active Substance: RILUZOLE
     Indication: AMYOTROPHIC LATERAL SCLEROSIS
     Dosage: UNK
     Route: 065
  2. RILUZOLE. [Suspect]
     Active Substance: RILUZOLE
     Dosage: UNK
     Route: 065

REACTIONS (4)
  - Portal vein thrombosis [Recovered/Resolved]
  - Pancreatic pseudocyst [Recovered/Resolved]
  - Drug ineffective [Fatal]
  - Pancreatitis relapsing [Fatal]
